FAERS Safety Report 21515420 (Version 4)
Quarter: 2023Q2

REPORT INFORMATION
  Report Type: Other
  Country: US (occurrence: None)
  Receive Date: 20221027
  Receipt Date: 20230607
  Transmission Date: 20230722
  Serious: Yes (Other)
  Sender: FDA-Public Use
  Company Number: US-ROCHE-2830867

PATIENT
  Age: 44 Year
  Sex: Male
  Weight: 104.42 kg

DRUGS (11)
  1. OCREVUS [Suspect]
     Active Substance: OCRELIZUMAB
     Indication: Relapsing-remitting multiple sclerosis
     Dosage: FOR TWO DOSES ;ONGOING: NO, 600 MG IV INFUSION PER ST. VINCENT INFUSION CENTER
     Route: 042
     Dates: start: 20210421, end: 20210505
  2. OCREVUS [Suspect]
     Active Substance: OCRELIZUMAB
     Indication: Relapsing multiple sclerosis
     Dosage: INJECTION
     Route: 042
  3. OCREVUS [Suspect]
     Active Substance: OCRELIZUMAB
     Indication: Primary progressive multiple sclerosis
     Route: 042
     Dates: start: 2019
  4. OCREVUS [Suspect]
     Active Substance: OCRELIZUMAB
     Indication: Relapsing-remitting multiple sclerosis
  5. BACLOFEN [Concomitant]
     Active Substance: BACLOFEN
     Indication: Muscle spasms
     Dosage: UP TO FOUR TIMES PER DAY
     Route: 048
  6. SOLU-MEDROL [Concomitant]
     Active Substance: METHYLPREDNISOLONE SODIUM SUCCINATE
     Indication: Pruritus
     Route: 042
     Dates: start: 20210421, end: 20210421
  7. LYRICA [Concomitant]
     Active Substance: PREGABALIN
  8. NORTRIPTYLINE [Concomitant]
     Active Substance: NORTRIPTYLINE
  9. TIZANIDINE [Concomitant]
     Active Substance: TIZANIDINE
  10. VIAGRA [Concomitant]
     Active Substance: SILDENAFIL CITRATE
  11. ASPIRIN [Concomitant]
     Active Substance: ASPIRIN

REACTIONS (9)
  - COVID-19 [Recovered/Resolved with Sequelae]
  - Thrombosis [Not Recovered/Not Resolved]
  - Pruritus [Recovered/Resolved]
  - Dry throat [Unknown]
  - Peripheral swelling [Not Recovered/Not Resolved]
  - Intervertebral disc protrusion [Unknown]
  - B-lymphocyte count decreased [Unknown]
  - White blood cell count decreased [Recovered/Resolved]
  - Visual impairment [Not Recovered/Not Resolved]

NARRATIVE: CASE EVENT DATE: 20210101
